FAERS Safety Report 11992965 (Version 1)
Quarter: 2016Q1

REPORT INFORMATION
  Report Type: Spontaneous
  Country: US (occurrence: None)
  Receive Date: 20160202
  Receipt Date: 20160202
  Transmission Date: 20160526
  Serious: Yes (Hospitalization)
  Sender: FDA-Public Use
  Company Number: None

PATIENT
  Age: 61 Year
  Sex: Male
  Weight: 153.3 kg

DRUGS (1)
  1. CISPLATIN. [Suspect]
     Active Substance: CISPLATIN
     Indication: SQUAMOUS CELL CARCINOMA OF THE ORAL CAVITY
     Route: 042
     Dates: start: 20151026

REACTIONS (2)
  - Renal impairment [None]
  - Dehydration [None]

NARRATIVE: CASE EVENT DATE: 20151110
